FAERS Safety Report 7028225-X (Version None)
Quarter: 2010Q3

REPORT INFORMATION
  Report Type: 
  Country: None (occurrence: None)
  Receive Date: 20100930
  Receipt Date: 20100923
  Transmission Date: 20110219
  Serious: Yes (Other)
  Sender: FDA-Public Use
  Company Number: AXC-2010-000191

PATIENT
  Age: 56 Year
  Sex: Male

DRUGS (1)
  1. SUCRALFATE [Suspect]
     Indication: OESOPHAGEAL CARCINOMA
     Dosage: 1 DF, SINGLE,
     Dates: start: 20100615, end: 20100615

REACTIONS (2)
  - PYREXIA [None]
  - RASH [None]
